FAERS Safety Report 10064190 (Version 15)
Quarter: 2014Q4

REPORT INFORMATION
  Report Type: Report from Study
  Country: US (occurrence: US)
  Receive Date: 20140408
  Receipt Date: 20141114
  Transmission Date: 20150528
  Serious: Yes (Death, Hospitalization, Other)
  Sender: FDA-Public Use
  Company Number: US-ALEXION PHARMACEUTICALS INC.-A201401117

PATIENT

DRUGS (4)
  1. SOLIRIS [Suspect]
     Active Substance: ECULIZUMAB
     Dosage: 1200 MG, Q3W
     Route: 042
  2. SOLIRIS [Suspect]
     Active Substance: ECULIZUMAB
     Dosage: 1200 MG, Q10 DAYS
     Route: 042
  3. SOLIRIS [Suspect]
     Active Substance: ECULIZUMAB
     Indication: HAEMOLYTIC URAEMIC SYNDROME
     Dosage: 1200 MG, Q2W
     Route: 042
     Dates: start: 20130821, end: 20141029
  4. SOLIRIS [Suspect]
     Active Substance: ECULIZUMAB
     Dosage: 1200 MG, QW
     Route: 042

REACTIONS (27)
  - Proteinuria [Unknown]
  - White blood cell count increased [Not Recovered/Not Resolved]
  - Oedema peripheral [Not Recovered/Not Resolved]
  - Blood lactate dehydrogenase increased [Not Recovered/Not Resolved]
  - Haptoglobin decreased [Unknown]
  - Inappropriate schedule of drug administration [Unknown]
  - Loss of consciousness [Unknown]
  - Pyrexia [Recovered/Resolved]
  - Herpes zoster [Unknown]
  - Unevaluable event [Unknown]
  - Haemolysis [Not Recovered/Not Resolved]
  - Cholecystitis [Unknown]
  - Asthma [Unknown]
  - Unevaluable event [Unknown]
  - Hepatic cirrhosis [Unknown]
  - Cardiac failure congestive [Unknown]
  - Haemoglobin abnormal [Unknown]
  - Fatigue [Unknown]
  - Drug ineffective [Not Recovered/Not Resolved]
  - Chronic obstructive pulmonary disease [Unknown]
  - Chronic obstructive pulmonary disease [Unknown]
  - Infection [Unknown]
  - Platelet count abnormal [Unknown]
  - Death [Fatal]
  - Mental status changes [Unknown]
  - Fungal infection [Unknown]
  - Splenomegaly [Unknown]

NARRATIVE: CASE EVENT DATE: 2014
